FAERS Safety Report 9726177 (Version 1)
Quarter: 2013Q4

REPORT INFORMATION
  Report Type: Report from Study
  Country: US (occurrence: US)
  Receive Date: 20131203
  Receipt Date: 20131203
  Transmission Date: 20140711
  Serious: Yes (Death)
  Sender: FDA-Public Use
  Company Number: PHEH2013US024978

PATIENT
  Age: 36 Year
  Sex: Male

DRUGS (1)
  1. FANAPT [Suspect]
     Dosage: 06 MG, UNK

REACTIONS (1)
  - Death [Fatal]
